FAERS Safety Report 4482723-1 (Version None)
Quarter: 2004Q3

REPORT INFORMATION
  Report Type: 
  Country: None (occurrence: None)
  Receive Date: 20040921
  Receipt Date: 20040630
  Transmission Date: 20050211
  Serious: Yes (Other)
  Sender: FDA-Public Use
  Company Number: 163-20785-04070005(0)

PATIENT
  Age: 68 Year
  Sex: Male
  Weight: 84.369 kg

DRUGS (5)
  1. THALOMID [Suspect]
     Indication: ACUTE MYELOID LEUKAEMIA
     Dosage: 200 MG, QD, ORAL; 100 MG, QD, ORAL
     Route: 048
     Dates: start: 20040528, end: 20040603
  2. THALOMID [Suspect]
     Indication: ACUTE MYELOID LEUKAEMIA
     Dosage: 200 MG, QD, ORAL; 100 MG, QD, ORAL
     Route: 048
     Dates: start: 20040604, end: 20040621
  3. TOPOTECAN (TOPOTECAN) [Suspect]
     Indication: ACUTE MYELOID LEUKAEMIA
     Dosage: 1.6 MG, QD X3 DAYS, INTRAVENOUS
     Route: 042
     Dates: start: 20040602, end: 20040604
  4. FLUDARABINE (FLUDARABINE) [Suspect]
     Indication: ACUTE MYELOID LEUKAEMIA
     Dosage: 28 MG, QD X5 DAYS, INTRAVENOUS
     Route: 042
     Dates: start: 20040528, end: 20040602
  5. CARBOPLATIN [Suspect]
     Indication: ACUTE MYELOID LEUKAEMIA
     Dosage: 190 MG, QD X 6 DAYS, INTRAVENOUS
     Route: 042
     Dates: start: 20040528, end: 20040602

REACTIONS (7)
  - ALANINE AMINOTRANSFERASE INCREASED [None]
  - ASPARTATE AMINOTRANSFERASE INCREASED [None]
  - BLOOD ALKALINE PHOSPHATASE INCREASED [None]
  - BLOOD BILIRUBIN INCREASED [None]
  - BLOOD CREATININE INCREASED [None]
  - GAMMA-GLUTAMYLTRANSFERASE INCREASED [None]
  - LIVER FUNCTION TEST ABNORMAL [None]
